FAERS Safety Report 9160683 (Version 1)
Quarter: 2013Q1

REPORT INFORMATION
  Report Type: Spontaneous
  Country: US (occurrence: None)
  Receive Date: 20130215
  Receipt Date: 20130215
  Transmission Date: 20140127
  Serious: Yes (Other)
  Sender: FDA-Public Use
  Company Number: 2013SA010594

PATIENT
  Sex: Female

DRUGS (1)
  1. ASPERCREME [Suspect]
     Indication: RHEUMATOID ARTHRITIS
     Dates: start: 20130201

REACTIONS (4)
  - Blister [None]
  - Pruritus [None]
  - Pain [None]
  - Burning sensation [None]
